FAERS Safety Report 14901769 (Version 2)
Quarter: 2018Q3

REPORT INFORMATION
  Report Type: Spontaneous
  Country: KR (occurrence: KR)
  Receive Date: 20180516
  Receipt Date: 20180703
  Transmission Date: 20181010
  Serious: Yes (Other)
  Sender: FDA-Public Use
  Company Number: KR-OTSUKA-2018_012446

PATIENT
  Age: 83 Year
  Sex: Female

DRUGS (1)
  1. PLETAL [Suspect]
     Active Substance: CILOSTAZOL
     Indication: CEREBROVASCULAR ACCIDENT
     Dosage: UNK
     Route: 065

REACTIONS (1)
  - Spinal epidural haematoma [Recovered/Resolved]
